FAERS Safety Report 5441748-X (Version None)
Quarter: 2007Q3

REPORT INFORMATION
  Report Type: 
  Country: None (occurrence: None)
  Receive Date: 20070829
  Receipt Date: 20070829
  Transmission Date: 20080115
  Serious: Yes (Hospitalization)
  Sender: FDA-Public Use
  Company Number: None

PATIENT
  Age: 65 Year
  Sex: Male

DRUGS (2)
  1. SULFAMETHOXAZOLE AND TRIMETHOPRIM [Suspect]
     Indication: PROPHYLAXIS
     Dosage: 800MG BID PO
     Route: 048
     Dates: start: 20061228, end: 20070821
  2. LISINOPRIL [Suspect]
     Indication: HYPERTENSION
     Dosage: 40MG EVERY DAY PO
     Route: 048
     Dates: start: 20060222, end: 20070820

REACTIONS (2)
  - HYPOTENSION [None]
  - NEPHRITIS INTERSTITIAL [None]
